FAERS Safety Report 20086836 (Version 1)
Quarter: 2021Q4

REPORT INFORMATION
  Report Type: Spontaneous
  Country: CN (occurrence: CN)
  Receive Date: 20211118
  Receipt Date: 20211118
  Transmission Date: 20220303
  Serious: Yes (Other)
  Sender: FDA-Public Use
  Company Number: CN-NOVARTISPH-NVSC2021CN257534

PATIENT
  Age: 65 Year
  Sex: Male
  Weight: 46 kg

DRUGS (4)
  1. OCTREOTIDE [Suspect]
     Active Substance: OCTREOTIDE
     Indication: Antacid therapy
     Dosage: 0.6 MG, QD
     Route: 042
     Dates: start: 20210903, end: 20210916
  2. OCTREOTIDE [Suspect]
     Active Substance: OCTREOTIDE
     Indication: Lymphatic fistula
  3. OCTREOTIDE [Suspect]
     Active Substance: OCTREOTIDE
  4. SODIUM CHLORIDE [Concomitant]
     Active Substance: SODIUM CHLORIDE
     Indication: Product used for unknown indication
     Dosage: 50 ML, QD (SOLVENT)
     Route: 042
     Dates: start: 20210903, end: 20210916

REACTIONS (1)
  - Transaminases increased [Recovering/Resolving]

NARRATIVE: CASE EVENT DATE: 20210910
